FAERS Safety Report 7383607-1 (Version None)
Quarter: 2011Q1

REPORT INFORMATION
  Report Type: 
  Country: None (occurrence: None)
  Receive Date: 20110330
  Receipt Date: 20110322
  Transmission Date: 20110831
  Serious: Yes (Hospitalization)
  Sender: FDA-Public Use
  Company Number: US-GILEAD-2011-0037777

PATIENT
  Age: 62 Year
  Sex: Male

DRUGS (2)
  1. REVATIO [Concomitant]
  2. LETAIRIS [Suspect]
     Indication: PRODUCT USED FOR UNKNOWN INDICATION
     Route: 048
     Dates: start: 20091005

REACTIONS (3)
  - FLUID RETENTION [None]
  - DYSPNOEA [None]
  - CREATININE RENAL CLEARANCE INCREASED [None]
